FAERS Safety Report 17105998 (Version 1)
Quarter: 2019Q4

REPORT INFORMATION
  Report Type: Spontaneous
  Country: ES (occurrence: ES)
  Receive Date: 20191203
  Receipt Date: 20191203
  Transmission Date: 20200122
  Serious: Yes (Other)
  Sender: FDA-Public Use
  Company Number: ES-PFIZER INC-2019517425

PATIENT
  Age: 50 Year
  Sex: Male

DRUGS (6)
  1. YURELAX [Concomitant]
     Active Substance: CYCLOBENZAPRINE HYDROCHLORIDE
     Dosage: 10 MG, 1X/DAY
     Route: 048
     Dates: start: 20191015
  2. DACORTIN [Concomitant]
     Active Substance: PREDNISONE
     Dosage: 30 MG, 1X/DAY
     Route: 048
     Dates: start: 20191015
  3. ZALDIAR [Concomitant]
     Active Substance: ACETAMINOPHEN\TRAMADOL HYDROCHLORIDE
     Dosage: 1 DF, 3X/DAY (EACH 8 HOURS)
     Route: 048
     Dates: start: 20191015
  4. LYRICA [Suspect]
     Active Substance: PREGABALIN
     Indication: MUSCULOSKELETAL PAIN
     Dosage: 25 MG, 1X/DAY
     Route: 048
     Dates: start: 20191015, end: 20191021
  5. METFORMIN [Concomitant]
     Active Substance: METFORMIN HYDROCHLORIDE
     Dosage: 850 MG, 2X/DAY (EACH 12H)
     Route: 048
     Dates: start: 20160307
  6. SIMVASTATIN. [Concomitant]
     Active Substance: SIMVASTATIN
     Dosage: 20 MG, 1X/DAY
     Route: 048
     Dates: start: 20171221

REACTIONS (6)
  - Coordination abnormal [Recovered/Resolved]
  - Off label use [Unknown]
  - Fall [Recovered/Resolved]
  - Dizziness [Recovered/Resolved]
  - Balance disorder [Recovered/Resolved]
  - Product use in unapproved indication [Unknown]

NARRATIVE: CASE EVENT DATE: 20191016
